FAERS Safety Report 7028362-X (Version None)
Quarter: 2010Q4

REPORT INFORMATION
  Report Type: 
  Country: None (occurrence: None)
  Receive Date: 20101005
  Receipt Date: 20100927
  Transmission Date: 20110411
  Serious: Yes (Life-Threatening, Hospitalization)
  Sender: FDA-Public Use
  Company Number: US-SANOFI-AVENTIS-2010SA058152

PATIENT
  Age: 38 Year
  Sex: Female
  Weight: 54 kg

DRUGS (11)
  1. AFLIBERCEPT [Suspect]
     Route: 042
     Dates: start: 20100902, end: 20100902
  2. AFLIBERCEPT [Suspect]
     Route: 042
     Dates: start: 20100921, end: 20100921
  3. OXALIPLATIN [Suspect]
     Route: 042
     Dates: start: 20100902, end: 20100902
  4. OXALIPLATIN [Suspect]
     Route: 042
     Dates: start: 20100921, end: 20100921
  5. PEMETREXED [Suspect]
     Route: 042
     Dates: start: 20100921, end: 20100921
  6. FOLIC ACID [Concomitant]
     Route: 048
  7. TRAZODONE HCL [Concomitant]
     Route: 048
  8. ATIVAN [Concomitant]
     Route: 048
  9. OXYCODONE AND ACETAMINOPHEN [Concomitant]
     Route: 048
  10. BENZONATATE [Concomitant]
     Route: 048
  11. PHENERGAN [Concomitant]
     Route: 048

REACTIONS (1)
  - REVERSIBLE POSTERIOR LEUKOENCEPHALOPATHY SYNDROME [None]
